FAERS Safety Report 7132369-1 (Version None)
Quarter: 2010Q4

REPORT INFORMATION
  Report Type: 
  Country: None (occurrence: None)
  Receive Date: 20101129
  Receipt Date: 20101129
  Transmission Date: 20110411
  Serious: Yes (Other)
  Sender: FDA-Public Use
  Company Number: None

PATIENT
  Sex: Male
  Weight: 74.8435 kg

DRUGS (4)
  1. JALYN [Suspect]
     Indication: DYSURIA
     Dates: start: 20100908
  2. JALYN [Suspect]
     Indication: PROSTATIC DISORDER
     Dates: start: 20100908
  3. JALYN [Suspect]
     Indication: DYSURIA
     Dates: start: 20101101
  4. JALYN [Suspect]
     Indication: PROSTATIC DISORDER
     Dates: start: 20101101

REACTIONS (4)
  - AMNESIA [None]
  - ASTHENIA [None]
  - BALANCE DISORDER [None]
  - CONFUSIONAL STATE [None]
